FAERS Safety Report 18306536 (Version 2)
Quarter: 2020Q4

REPORT INFORMATION
  Report Type: Spontaneous
  Country: US (occurrence: US)
  Receive Date: 20200924
  Receipt Date: 20201028
  Transmission Date: 20210113
  Serious: No
  Sender: FDA-Public Use
  Company Number: US-009507513-2009USA008908

PATIENT
  Age: 21 Year
  Sex: Female
  Weight: 60.77 kg

DRUGS (6)
  1. NEXPLANON [Suspect]
     Active Substance: ETONOGESTREL
     Indication: MENSTRUATION IRREGULAR
  2. TYLENOL [Concomitant]
     Active Substance: ACETAMINOPHEN
     Dosage: UNK
  3. NEXPLANON [Suspect]
     Active Substance: ETONOGESTREL
     Indication: MUSCLE SPASMS
  4. NEXPLANON [Suspect]
     Active Substance: ETONOGESTREL
     Indication: MOOD SWINGS
  5. NEXPLANON [Suspect]
     Active Substance: ETONOGESTREL
     Indication: CONTRACEPTION
     Dosage: 1 IMPLANT, INSERTED INTO UPPER LEFT ARM
     Route: 059
     Dates: start: 20200428
  6. GIANVI [Concomitant]
     Active Substance: DROSPIRENONE\ETHINYL ESTRADIOL
     Dosage: 1 DOSAGE FORM, QD
     Route: 048
     Dates: start: 20181015

REACTIONS (7)
  - Product use in unapproved indication [Unknown]
  - Acne [Unknown]
  - Menstruation delayed [Not Recovered/Not Resolved]
  - Wound [Unknown]
  - Complication of device removal [Not Recovered/Not Resolved]
  - Headache [Not Recovered/Not Resolved]
  - Complication associated with device [Not Recovered/Not Resolved]

NARRATIVE: CASE EVENT DATE: 2020
